FAERS Safety Report 9922835 (Version 1)
Quarter: 2014Q1

REPORT INFORMATION
  Report Type: Spontaneous
  Country: JP (occurrence: JP)
  Receive Date: 20140225
  Receipt Date: 20140225
  Transmission Date: 20141002
  Serious: Yes (Hospitalization)
  Sender: FDA-Public Use
  Company Number: JP-BRISTOL-MYERS SQUIBB COMPANY-20300851

PATIENT
  Age: 40 Year
  Sex: Male

DRUGS (5)
  1. METGLUCO [Suspect]
     Indication: TYPE 2 DIABETES MELLITUS
     Route: 048
  2. MICAMLO [Concomitant]
     Route: 048
  3. SITAGLIPTIN PHOSPHATE [Concomitant]
     Route: 048
  4. GLIMEPIRIDE [Concomitant]
     Route: 048
  5. PRAVASTATIN SODIUM [Concomitant]
     Route: 048

REACTIONS (1)
  - Renal failure acute [Recovered/Resolved]
